FAERS Safety Report 13779700 (Version 2)
Quarter: 2018Q4

REPORT INFORMATION
  Report Type: Spontaneous
  Country: PT (occurrence: PT)
  Receive Date: 20170722
  Receipt Date: 20181225
  Transmission Date: 20190204
  Serious: Yes (Hospitalization, Other)
  Sender: FDA-Public Use
  Company Number: PT-AUROBINDO-AUR-APL-2010-01148

PATIENT
  Age: 52 Year
  Sex: Female

DRUGS (2)
  1. IRBESARTAN AND HYDROCHLOROTHIAZIDE [Concomitant]
     Active Substance: HYDROCHLOROTHIAZIDE\IRBESARTAN
     Indication: HYPERTENSION
     Dosage: UNK UNK,UNK,UNKNOWN,UNKNOWN
     Route: 065
  2. TERBINAFINA AUROBINDO 125MG [Suspect]
     Active Substance: TERBINAFINE HYDROCHLORIDE
     Indication: ONYCHOMYCOSIS
     Dosage: UNK UNK,UNK,UNKNOWN,UNKNOWN
     Route: 065

REACTIONS (12)
  - Aspartate aminotransferase increased [Unknown]
  - Alanine aminotransferase increased [Unknown]
  - Hepatomegaly [Unknown]
  - Hepatitis toxic [Unknown]
  - Pruritus [Unknown]
  - Blood bilirubin increased [Unknown]
  - Asthenia [Unknown]
  - Jaundice [Recovered/Resolved]
  - Blood alkaline phosphatase increased [Unknown]
  - Hepatic necrosis [Unknown]
  - Choluria [Unknown]
  - Cholestasis [Unknown]
